FAERS Safety Report 8547288-3 (Version None)
Quarter: 2012Q3

REPORT INFORMATION
  Report Type: 
  Country: None (occurrence: None)
  Receive Date: 20120727
  Receipt Date: 20120315
  Transmission Date: 20120928
  Serious: No
  Sender: FDA-Public Use
  Company Number: US-ASTRAZENECA-2012SE17879

PATIENT
  Age: 62 Year
  Sex: Female
  Weight: 79.4 kg

DRUGS (13)
  1. TEGRETOL [Suspect]
     Route: 065
  2. OMEPRAZOLE [Concomitant]
  3. LORAZEPAM [Concomitant]
  4. SEROQUEL [Suspect]
     Route: 048
  5. FERROUS GLUCONATE [Concomitant]
  6. FLUOXETINE HCL [Concomitant]
  7. ZOPADINE [Concomitant]
     Indication: SLEEP DISORDER
  8. HYDROXYZINE HCL [Concomitant]
     Indication: ANXIETY
  9. SEROQUEL [Suspect]
     Indication: BIPOLAR DISORDER
     Route: 048
  10. LISINOPRIL [Concomitant]
  11. DICYCLOMINE [Concomitant]
  12. SODIUM BICARBONATE [Concomitant]
  13. LEVOTHYROXINE SODIUM [Concomitant]

REACTIONS (3)
  - ANXIETY [None]
  - PANIC ATTACK [None]
  - CONDITION AGGRAVATED [None]
